FAERS Safety Report 10135926 (Version 1)
Quarter: 2014Q2

REPORT INFORMATION
  Report Type: Report from Study
  Country: FR (occurrence: FR)
  Receive Date: 20140429
  Receipt Date: 20140429
  Transmission Date: 20141212
  Serious: Yes (Hospitalization)
  Sender: FDA-Public Use
  Company Number: FR-ROCHE-1389011

PATIENT
  Sex: Female

DRUGS (31)
  1. RITUXIMAB [Suspect]
     Indication: RHEUMATOID ARTHRITIS
     Dosage: DAY 1
     Route: 041
     Dates: start: 20051025
  2. RITUXIMAB [Suspect]
     Dosage: DAY 15
     Route: 041
     Dates: start: 20051109
  3. RITUXIMAB [Suspect]
     Dosage: DAY 1
     Route: 041
     Dates: start: 20060920
  4. RITUXIMAB [Suspect]
     Dosage: DAY 15
     Route: 041
     Dates: start: 20061004
  5. RITUXIMAB [Suspect]
     Dosage: DAY 1
     Route: 041
     Dates: start: 20070327
  6. RITUXIMAB [Suspect]
     Dosage: DAY 15
     Route: 041
     Dates: start: 20070410
  7. RITUXIMAB [Suspect]
     Dosage: DAY 1
     Route: 041
     Dates: start: 20071122
  8. RITUXIMAB [Suspect]
     Dosage: DAY 15
     Route: 041
     Dates: start: 20071206
  9. RITUXIMAB [Suspect]
     Dosage: DAY 1
     Route: 041
     Dates: start: 20080625
  10. RITUXIMAB [Suspect]
     Dosage: DAY 15
     Route: 041
     Dates: start: 20080709
  11. RITUXIMAB [Suspect]
     Dosage: DAY 1
     Route: 041
     Dates: start: 20090209
  12. RITUXIMAB [Suspect]
     Dosage: DAY 15
     Route: 041
     Dates: start: 20090223
  13. RITUXIMAB [Suspect]
     Dosage: DAY 1
     Route: 041
     Dates: start: 20090809
  14. RITUXIMAB [Suspect]
     Dosage: DAY 15
     Route: 041
     Dates: start: 20090824
  15. RITUXIMAB [Suspect]
     Dosage: DAY 1
     Route: 041
     Dates: start: 20100217
  16. RITUXIMAB [Suspect]
     Dosage: DAY 15
     Route: 041
     Dates: start: 20100302
  17. RITUXIMAB [Suspect]
     Dosage: DAY 1
     Route: 041
     Dates: start: 20100824
  18. RITUXIMAB [Suspect]
     Dosage: DAY 1
     Route: 041
     Dates: start: 20100907
  19. RITUXIMAB [Suspect]
     Dosage: DAY 1
     Route: 041
     Dates: start: 20110321
  20. RITUXIMAB [Suspect]
     Dosage: DAY 15
     Route: 041
     Dates: start: 20110404
  21. RITUXIMAB [Suspect]
     Dosage: DAY 1
     Route: 041
     Dates: start: 20110919
  22. RITUXIMAB [Suspect]
     Dosage: DAY 15
     Route: 041
     Dates: start: 20111003
  23. RITUXIMAB [Suspect]
     Dosage: DAY 1
     Route: 041
     Dates: start: 20120420
  24. RITUXIMAB [Suspect]
     Dosage: DAY 15
     Route: 041
     Dates: start: 20120511
  25. RITUXIMAB [Suspect]
     Dosage: DAY 1
     Route: 041
     Dates: start: 20121107
  26. RITUXIMAB [Suspect]
     Dosage: DAY 15
     Route: 041
     Dates: start: 20121121
  27. CORTANCYL [Concomitant]
     Dosage: 8 MG/D
     Route: 065
  28. CORTANCYL [Concomitant]
     Dosage: 15 MG/D
     Route: 065
  29. CORTANCYL [Concomitant]
     Dosage: 10 MG/D
     Route: 065
  30. METHYLPREDNISOLONE [Concomitant]
     Route: 065
  31. ATACAND [Concomitant]
     Route: 065
     Dates: end: 20111110

REACTIONS (18)
  - Rheumatoid arthritis [Recovered/Resolved]
  - Device dislocation [Unknown]
  - Malaise [Not Recovered/Not Resolved]
  - Infected cyst [Unknown]
  - Prurigo [Recovered/Resolved]
  - Paraesthesia [Recovered/Resolved]
  - Rash macular [Recovered/Resolved]
  - Dermatitis allergic [Recovered/Resolved]
  - Rash [Recovered/Resolved]
  - Tracheobronchitis [Recovered/Resolved]
  - Tendon rupture [Not Recovered/Not Resolved]
  - Nausea [Recovered/Resolved]
  - Gamma-glutamyltransferase increased [Recovered/Resolved]
  - Bronchitis [Recovered/Resolved]
  - Vitamin D deficiency [Recovered/Resolved]
  - Depression [Recovered/Resolved]
  - Nasopharyngitis [Recovered/Resolved]
  - Fatigue [Recovered/Resolved]
